FAERS Safety Report 12614124 (Version 4)
Quarter: 2017Q3

REPORT INFORMATION
  Report Type: Spontaneous
  Country: CN (occurrence: CN)
  Receive Date: 20160802
  Receipt Date: 20170824
  Transmission Date: 20171127
  Serious: Yes (Other)
  Sender: FDA-Public Use
  Company Number: CN-JNJFOC-20160800485

PATIENT
  Age: 57 Year
  Sex: Female

DRUGS (6)
  1. DOXORUBICIN HYDROCHLORIDE. [Suspect]
     Active Substance: DOXORUBICIN HYDROCHLORIDE
     Indication: METASTASES TO LUNG
     Dosage: DAY 1
     Route: 065
     Dates: start: 20131117, end: 20140211
  2. DOXORUBICIN HYDROCHLORIDE. [Suspect]
     Active Substance: DOXORUBICIN HYDROCHLORIDE
     Indication: METASTASES TO LUNG
     Dosage: DAY 1
     Route: 065
     Dates: start: 20131117, end: 20140211
  3. DOXORUBICIN HYDROCHLORIDE. [Suspect]
     Active Substance: DOXORUBICIN HYDROCHLORIDE
     Indication: POORLY DIFFERENTIATED THYROID CARCINOMA
     Dosage: DAY 1
     Route: 065
     Dates: start: 20131117, end: 20140211
  4. CISPLATIN. [Suspect]
     Active Substance: CISPLATIN
     Indication: METASTASES TO LUNG
     Dosage: DAY 1 TO DAY 3
     Route: 065
     Dates: start: 20131117, end: 20140211
  5. CISPLATIN. [Suspect]
     Active Substance: CISPLATIN
     Indication: POORLY DIFFERENTIATED THYROID CARCINOMA
     Dosage: DAY 1 TO DAY 3
     Route: 065
     Dates: start: 20131117, end: 20140211
  6. DOXORUBICIN HYDROCHLORIDE. [Suspect]
     Active Substance: DOXORUBICIN HYDROCHLORIDE
     Indication: POORLY DIFFERENTIATED THYROID CARCINOMA
     Dosage: DAY 1
     Route: 065
     Dates: start: 20131117, end: 20140211

REACTIONS (4)
  - Product use in unapproved indication [Unknown]
  - Bone marrow failure [Recovered/Resolved]
  - Off label use [Unknown]
  - Palmar-plantar erythrodysaesthesia syndrome [Recovered/Resolved]
